FAERS Safety Report 8457126-5 (Version None)
Quarter: 2012Q2

REPORT INFORMATION
  Report Type: 
  Country: None (occurrence: None)
  Receive Date: 20120614
  Receipt Date: 20120530
  Transmission Date: 20120825
  Serious: Yes (Other)
  Sender: FDA-Public Use
  Company Number: 2012-00856

PATIENT
  Age: 38 Year
  Sex: Female

DRUGS (3)
  1. SERTRALINE HYDROCHLORIDE [Suspect]
     Indication: ANXIETY
     Dosage: 25 MG (,DAILY), 50 MG (,DAILY), 100 MG (,DAILY),
     Dates: start: 20120101
  2. SERTRALINE HYDROCHLORIDE [Suspect]
     Indication: DEPRESSION
     Dosage: 25 MG (,DAILY), 50 MG (,DAILY), 100 MG (,DAILY),
     Dates: start: 20120101
  3. SERTRALINE HYDROCHLORIDE [Suspect]
     Indication: PANIC ATTACK
     Dosage: 25 MG (,DAILY), 50 MG (,DAILY), 100 MG (,DAILY),
     Dates: start: 20120101

REACTIONS (6)
  - DEPRESSION [None]
  - AMENORRHOEA [None]
  - PROGESTERONE DECREASED [None]
  - ANOVULATORY CYCLE [None]
  - ENDOCRINE DISORDER [None]
  - ADRENAL INSUFFICIENCY [None]
